FAERS Safety Report 16359231 (Version 2)
Quarter: 2019Q2

REPORT INFORMATION
  Report Type: Spontaneous
  Country: US (occurrence: US)
  Receive Date: 20190527
  Receipt Date: 20190628
  Transmission Date: 20190711
  Serious: No
  Sender: FDA-Public Use
  Company Number: US-SA-2019SA140689

PATIENT
  Age: 41 Year
  Sex: Female

DRUGS (1)
  1. LANTUS SOLOSTAR [Suspect]
     Active Substance: INSULIN GLARGINE
     Indication: TYPE 2 DIABETES MELLITUS
     Dosage: 36 U, HS
     Route: 065

REACTIONS (4)
  - Product dose omission [Unknown]
  - Injection site haemorrhage [Unknown]
  - Product dose omission [Unknown]
  - Product dose omission [Unknown]

NARRATIVE: CASE EVENT DATE: 20190517
